FAERS Safety Report 6920216-X (Version None)
Quarter: 2010Q3

REPORT INFORMATION
  Report Type: 
  Country: None (occurrence: None)
  Receive Date: 20100809
  Receipt Date: 20100726
  Transmission Date: 20110219
  Serious: Yes (Hospitalization)
  Sender: FDA-Public Use
  Company Number: AMAG201000307

PATIENT
  Age: 73 Year
  Sex: Male
  Weight: 82.5 kg

DRUGS (11)
  1. FERAHEME [Suspect]
     Indication: IRON DEFICIENCY ANAEMIA
     Dosage: 510MG, SINGLE, INTRAVENOUS
     Route: 042
     Dates: start: 20100419, end: 20100419
  2. FERAHEME [Suspect]
     Indication: NEPHROGENIC ANAEMIA
     Dosage: 510MG, SINGLE, INTRAVENOUS
     Route: 042
     Dates: start: 20100419, end: 20100419
  3. SODIUM BICARBONATE IN PLASTIC CONTAINER [Concomitant]
  4. VITAMIN B12 (HYDROXOCOBALAMIN) [Concomitant]
  5. SIMVASTATIN [Concomitant]
  6. ASPIRIN [Concomitant]
  7. PROCRIT [Concomitant]
  8. MUCINEX [Concomitant]
  9. ERGO SANOL (ERGOTAMINE TARTRATE, ETHENZAMIDE) [Concomitant]
  10. NEPHROVITE (ASCORBIC ACID, BIOTIN, CALCIUM PANTHOTHENATE, CYANOCOBALAM [Concomitant]
  11. KIONEX (SODIUM POLYSTYRENE SULFONATE [Concomitant]

REACTIONS (21)
  - BLOOD CREATININE INCREASED [None]
  - BLOOD GLUCOSE INCREASED [None]
  - BLOOD UREA INCREASED [None]
  - CHEST X-RAY ABNORMAL [None]
  - COUGH [None]
  - DYSPNOEA [None]
  - EYE ROLLING [None]
  - HAEMATOCRIT DECREASED [None]
  - HAEMOGLOBIN DECREASED [None]
  - HYPERHIDROSIS [None]
  - HYPOTENSION [None]
  - RED BLOOD CELLS URINE POSITIVE [None]
  - SINUS TACHYCARDIA [None]
  - SNORING [None]
  - SOMNOLENCE [None]
  - SYNCOPE [None]
  - TRACHEOBRONCHITIS [None]
  - TREMOR [None]
  - URINARY INCONTINENCE [None]
  - VOMITING [None]
  - WHITE BLOOD CELLS URINE POSITIVE [None]
